FAERS Safety Report 15658629 (Version 1)
Quarter: 2018Q4

REPORT INFORMATION
  Report Type: Spontaneous
  Country: FR (occurrence: FR)
  Receive Date: 20181126
  Receipt Date: 20181126
  Transmission Date: 20190205
  Serious: Yes (Other)
  Sender: FDA-Public Use
  Company Number: FR-SA-2018SA319219

PATIENT
  Age: 27 Year
  Sex: Male
  Weight: 66 kg

DRUGS (5)
  1. CEFTRIAXONE SODIUM. [Suspect]
     Active Substance: CEFTRIAXONE SODIUM
     Route: 048
     Dates: start: 20180922, end: 20180929
  2. DIFFU K [Concomitant]
     Active Substance: POTASSIUM CHLORIDE
  3. LOVENOX [Suspect]
     Active Substance: ENOXAPARIN SODIUM
     Dosage: 4000 IU
     Dates: start: 20180923
  4. SPIRAMYCIN [Suspect]
     Active Substance: SPIRAMYCIN
     Route: 048
     Dates: start: 20180922, end: 20180922
  5. SALBUTAMOL SULFATE [Suspect]
     Active Substance: ALBUTEROL SULFATE
     Route: 055

REACTIONS (1)
  - Hepatocellular injury [Recovering/Resolving]

NARRATIVE: CASE EVENT DATE: 20180928
